FAERS Safety Report 9409139 (Version 2)
Quarter: 2013Q3

REPORT INFORMATION
  Report Type: Spontaneous
  Country: US (occurrence: US)
  Receive Date: 20130719
  Receipt Date: 20130805
  Transmission Date: 20140515
  Serious: No
  Sender: FDA-Public Use
  Company Number: US-BIOGENIDEC-2013BI065562

PATIENT
  Age: 57 Year
  Sex: Female

DRUGS (1)
  1. TYSABRI [Suspect]
     Indication: MULTIPLE SCLEROSIS
     Route: 042
     Dates: start: 20120831

REACTIONS (14)
  - Colitis [Unknown]
  - Hypotonia [Unknown]
  - Sensation of heaviness [Unknown]
  - Swelling face [Unknown]
  - Fear [Unknown]
  - Hypoaesthesia [Unknown]
  - Emotional distress [Unknown]
  - Feeling abnormal [Unknown]
  - General symptom [Unknown]
  - Stress [Unknown]
  - Carpal tunnel syndrome [Unknown]
  - Anxiety [Unknown]
  - Malaise [Unknown]
  - Pyrexia [Unknown]
